FAERS Safety Report 24798737 (Version 1)
Quarter: 2025Q1

REPORT INFORMATION
  Report Type: Spontaneous
  Country: CH (occurrence: CH)
  Receive Date: 20250102
  Receipt Date: 20250102
  Transmission Date: 20250409
  Serious: Yes (Death, Other)
  Sender: AMGEN
  Company Number: CH-AMGEN-CHESP2024253752

PATIENT
  Age: 40 Year
  Sex: Male

DRUGS (19)
  1. CARFILZOMIB [Suspect]
     Active Substance: CARFILZOMIB
     Indication: Off label use
     Route: 065
  2. CARFILZOMIB [Suspect]
     Active Substance: CARFILZOMIB
     Indication: Plasma cell leukaemia
  3. LENALIDOMIDE [Concomitant]
     Active Substance: LENALIDOMIDE
     Indication: Plasma cell leukaemia
     Route: 065
  4. DEXAMETHASONE [Concomitant]
     Active Substance: DEXAMETHASONE
     Indication: Plasma cell leukaemia
     Route: 065
  5. DEXAMETHASONE [Concomitant]
     Active Substance: DEXAMETHASONE
     Route: 065
     Dates: start: 202202
  6. DARATUMUMAB [Concomitant]
     Active Substance: DARATUMUMAB
     Indication: Plasma cell leukaemia
     Route: 058
  7. CISPLATIN [Concomitant]
     Active Substance: CISPLATIN
     Indication: Plasma cell leukaemia
     Route: 065
     Dates: start: 202202
  8. DOXORUBICIN [Concomitant]
     Active Substance: DOXORUBICIN
     Indication: Plasma cell leukaemia
     Route: 065
     Dates: start: 202202
  9. CYCLOPHOSPHAMIDE [Concomitant]
     Active Substance: CYCLOPHOSPHAMIDE
     Indication: Plasma cell leukaemia
     Route: 065
     Dates: start: 202202
  10. ETOPOSIDE [Concomitant]
     Active Substance: ETOPOSIDE
     Indication: Plasma cell leukaemia
     Route: 065
     Dates: start: 202202
  11. BORTEZOMIB [Concomitant]
     Active Substance: BORTEZOMIB
     Indication: Plasma cell leukaemia
     Route: 065
     Dates: start: 202202
  12. POMALIDOMIDE [Concomitant]
     Active Substance: POMALIDOMIDE
     Indication: Plasma cell leukaemia
     Route: 065
     Dates: start: 202202
  13. MELPHALAN [Concomitant]
     Active Substance: MELPHALAN
     Indication: Plasma cell leukaemia
     Route: 065
     Dates: start: 202202
  14. ELRANATAMAB [Concomitant]
     Active Substance: ELRANATAMAB
     Indication: Plasma cell leukaemia
     Dosage: 76 MILLIGRAM, QWK
     Route: 058
  15. SULFAMETHOXAZOLE\TRIMETHOPRIM [Concomitant]
     Active Substance: SULFAMETHOXAZOLE\TRIMETHOPRIM
     Indication: Antibiotic prophylaxis
     Dates: start: 2023
  16. TALQUETAMAB [Concomitant]
     Active Substance: TALQUETAMAB
     Indication: Plasma cell leukaemia
     Route: 058
     Dates: start: 202309
  17. TALQUETAMAB [Concomitant]
     Active Substance: TALQUETAMAB
     Indication: Neutropenia
     Route: 058
  18. TALQUETAMAB [Concomitant]
     Active Substance: TALQUETAMAB
     Route: 058
  19. VALACYCLOVIR HYDROCHLORIDE [Concomitant]
     Active Substance: VALACYCLOVIR HYDROCHLORIDE
     Indication: Antibiotic prophylaxis
     Dosage: 500 MILLIGRAM, BID
     Dates: start: 2023

REACTIONS (6)
  - Death [Fatal]
  - Neutropenia [Unknown]
  - Plasma cell leukaemia [Unknown]
  - Cytokine release syndrome [Unknown]
  - Haematotoxicity [Unknown]
  - Off label use [Unknown]

NARRATIVE: CASE EVENT DATE: 20230101
